FAERS Safety Report 23825296 (Version 1)
Quarter: 2024Q2

REPORT INFORMATION
  Report Type: Spontaneous
  Country: ZA (occurrence: None)
  Receive Date: 20240507
  Receipt Date: 20240507
  Transmission Date: 20240716
  Serious: Yes (Hospitalization, Other)
  Sender: FDA-Public Use
  Company Number: 2024A102888

PATIENT
  Sex: Male

DRUGS (19)
  1. BUDESONIDE\FORMOTEROL [Suspect]
     Active Substance: BUDESONIDE\FORMOTEROL
     Indication: Asthma
     Dosage: 160 UG, UNKNOWN UNKNOWN
     Route: 055
  2. BUDESONIDE\FORMOTEROL [Suspect]
     Active Substance: BUDESONIDE\FORMOTEROL
     Indication: Chronic obstructive pulmonary disease
     Dosage: 160 UG, UNKNOWN UNKNOWN
     Route: 055
  3. IFOSFAMIDE [Concomitant]
     Active Substance: IFOSFAMIDE
     Indication: Neoplasm malignant
     Dosage: 2000.0MG UNKNOWN
     Route: 042
  4. ETOPOSIDE FRESENIUS [Concomitant]
     Indication: Chemotherapy
     Dosage: 100.0MG UNKNOWN
     Route: 042
  5. CARBOPLATIN [Concomitant]
     Active Substance: CARBOPLATIN
     Indication: Ovarian cancer
     Dosage: 600.0MG UNKNOWN
     Route: 042
  6. RITUXIMAB [Concomitant]
     Active Substance: RITUXIMAB
     Indication: Hodgkin^s disease
     Dosage: 500.0MG UNKNOWN
     Route: 042
  7. VOMIDON [Concomitant]
     Indication: Nausea
     Dosage: 10.0MG UNKNOWN
     Route: 048
  8. VOMIDON [Concomitant]
     Indication: Vomiting
     Dosage: 10.0MG UNKNOWN
     Route: 048
  9. VOMIDON [Concomitant]
     Indication: Gastrooesophageal reflux disease
     Dosage: 10.0MG UNKNOWN
     Route: 048
  10. VOMIDON [Concomitant]
     Indication: Dyspepsia
     Dosage: 10.0MG UNKNOWN
     Route: 048
  11. VOMIDON [Concomitant]
     Indication: Dyspepsia
     Dosage: 10.0MG UNKNOWN
     Route: 048
  12. DORMONOCT [Concomitant]
     Active Substance: LOPRAZOLAM
     Indication: Insomnia
     Dosage: 2.0MG UNKNOWN
     Route: 048
  13. MEBEVERINE [Concomitant]
     Active Substance: MEBEVERINE
     Indication: Irritable bowel syndrome
     Dosage: 135.0MG UNKNOWN
     Route: 048
  14. MEBEVERINE [Concomitant]
     Active Substance: MEBEVERINE
     Indication: Abdominal pain upper
     Dosage: 135.0MG UNKNOWN
     Route: 048
  15. MEBEVERINE [Concomitant]
     Active Substance: MEBEVERINE
     Indication: Abdominal pain
     Dosage: 135.0MG UNKNOWN
     Route: 048
  16. PANTOCID [Concomitant]
     Indication: Peptic ulcer
     Dosage: 40.0MG UNKNOWN
     Route: 048
  17. PANTOCID [Concomitant]
     Indication: Helicobacter infection
     Dosage: 40.0MG UNKNOWN
     Route: 048
  18. PANTOCID [Concomitant]
     Indication: Gastrinoma
     Dosage: 40.0MG UNKNOWN
     Route: 048
  19. PANTOCID [Concomitant]
     Indication: Dyspepsia
     Dosage: 40.0MG UNKNOWN
     Route: 048

REACTIONS (1)
  - Neoplasm malignant [Unknown]
